FAERS Safety Report 5408363-5 (Version None)
Quarter: 2007Q3

REPORT INFORMATION
  Report Type: 
  Country: None (occurrence: None)
  Receive Date: 20070803
  Receipt Date: 20070718
  Transmission Date: 20080115
  Serious: Yes (Hospitalization)
  Sender: FDA-Public Use
  Company Number: 2007RR-08818

PATIENT
  Age: 63 Year
  Sex: Female

DRUGS (1)
  1. LORAZEPAM             (LORAZEPAM) UNKNOWN [Suspect]

REACTIONS (1)
  - ERYTHEMA MULTIFORME [None]
